FAERS Safety Report 20530331 (Version 1)
Quarter: 2022Q1

REPORT INFORMATION
  Report Type: Spontaneous
  Country: CA (occurrence: CA)
  Receive Date: 20220301
  Receipt Date: 20220301
  Transmission Date: 20220423
  Serious: Yes (Other)
  Sender: FDA-Public Use
  Company Number: CA-LUPIN PHARMACEUTICALS INC.-2022-02627

PATIENT
  Sex: Female

DRUGS (2)
  1. METRONIDAZOLE [Suspect]
     Active Substance: METRONIDAZOLE
     Indication: Trichomoniasis
     Dosage: UNK (RECEIVED FIRST COURSE FOR MORE THAN 4 WEEKS. THEN RECEIVED THE SECOND COURSE OF METRONIDAZOLE;
     Route: 065
  2. METRONIDAZOLE [Suspect]
     Active Substance: METRONIDAZOLE
     Dosage: 2 GRAM (FOURTH COURSE)
     Route: 048

REACTIONS (1)
  - Drug resistance [Unknown]
